FAERS Safety Report 6641739-7 (Version None)
Quarter: 2010Q1

REPORT INFORMATION
  Report Type: 
  Country: None (occurrence: None)
  Receive Date: 20100319
  Receipt Date: 20100309
  Transmission Date: 20100710
  Serious: Yes (Hospitalization)
  Sender: FDA-Public Use
  Company Number: US-BIOGENIDEC-2010BI007799

PATIENT
  Age: 54 Year
  Sex: Female
  Weight: 130 kg

DRUGS (7)
  1. AVONEX [Suspect]
     Indication: MULTIPLE SCLEROSIS
     Route: 030
     Dates: start: 20100108
  2. NEXIUM [Concomitant]
     Indication: GASTROOESOPHAGEAL REFLUX DISEASE
     Dates: start: 20050101
  3. ARTHROTEC [Concomitant]
     Indication: SENILE ANKYLOSING VERTEBRAL HYPEROSTOSIS
     Dates: start: 20090101
  4. VITAMIN D [Concomitant]
     Indication: MULTIPLE SCLEROSIS
  5. CALCIUM [Concomitant]
     Indication: DRUG USE FOR UNKNOWN INDICATION
  6. LOVAZA [Concomitant]
     Indication: DRUG USE FOR UNKNOWN INDICATION
  7. FLAXSEED [Concomitant]
     Indication: DRUG USE FOR UNKNOWN INDICATION

REACTIONS (1)
  - BONE LESION EXCISION [None]
